FAERS Safety Report 21228027 (Version 1)
Quarter: 2022Q3

REPORT INFORMATION
  Report Type: Spontaneous
  Country: IN (occurrence: IN)
  Receive Date: 20220818
  Receipt Date: 20220818
  Transmission Date: 20221027
  Serious: Yes (Other)
  Sender: FDA-Public Use
  Company Number: IN-SUN PHARMACEUTICAL INDUSTRIES LTD-2020R1-241885

PATIENT
  Age: 42 Year
  Sex: Male

DRUGS (2)
  1. LITHIUM [Suspect]
     Active Substance: LITHIUM
     Indication: Bipolar disorder
     Dosage: 900 MILLIGRAM, DAILY
     Route: 065
  2. LITHIUM [Suspect]
     Active Substance: LITHIUM
     Indication: Mania

REACTIONS (1)
  - Nephropathy [Recovering/Resolving]
